APPROVED DRUG PRODUCT: LEUPROLIDE ACETATE FOR DEPOT SUSPENSION
Active Ingredient: LEUPROLIDE ACETATE
Strength: 22.5MG/VIAL
Dosage Form/Route: FOR SUSPENSION;INTRAMUSCULAR
Application: N205054 | Product #001
Applicant: INVAGEN PHARMACEUTICALS INC
Approved: Aug 28, 2018 | RLD: Yes | RS: Yes | Type: RX